FAERS Safety Report 12913361 (Version 1)
Quarter: 2016Q4

REPORT INFORMATION
  Report Type: Spontaneous
  Country: US (occurrence: US)
  Receive Date: 20161104
  Receipt Date: 20161104
  Transmission Date: 20170207
  Serious: Yes (Other)
  Sender: FDA-Public Use
  Company Number: US-AIRGAS USA-1059255

PATIENT
  Age: 25 Year
  Sex: Male
  Weight: 88 kg

DRUGS (12)
  1. PROPOFOL. [Concomitant]
     Active Substance: PROPOFOL
  2. SUCCINYLCHOLINE CHLORIDE. [Concomitant]
     Active Substance: SUCCINYLCHOLINE CHLORIDE
  3. DESFLURANE. [Concomitant]
     Active Substance: DESFLURANE
  4. MIVACURIUM CHLORIDE. [Concomitant]
     Active Substance: MIVACURIUM CHLORIDE
  5. MIDAZOLAM [Concomitant]
     Active Substance: MIDAZOLAM\MIDAZOLAM HYDROCHLORIDE
  6. SODIUM CITRATE. [Concomitant]
     Active Substance: SODIUM CITRATE
  7. METOCLOPRAMIDE. [Concomitant]
     Active Substance: METOCLOPRAMIDE
  8. RANITIDINE. [Concomitant]
     Active Substance: RANITIDINE
  9. FENTANYL. [Concomitant]
     Active Substance: FENTANYL
  10. CARBON DIOXIDE. [Suspect]
     Active Substance: CARBON DIOXIDE
     Indication: LAPAROSCOPIC SURGERY
  11. RANITIDINE. [Concomitant]
     Active Substance: RANITIDINE
  12. OXYGEN. [Concomitant]
     Active Substance: OXYGEN

REACTIONS (3)
  - Subcutaneous emphysema [Recovered/Resolved]
  - Hypercapnia [Recovered/Resolved]
  - Respiratory acidosis [Recovered/Resolved]
